FAERS Safety Report 7103191-7 (Version None)
Quarter: 2010Q4

REPORT INFORMATION
  Report Type: 
  Country: None (occurrence: None)
  Receive Date: 20101115
  Receipt Date: 20101109
  Transmission Date: 20110411
  Serious: Yes (Hospitalization, Disabling)
  Sender: FDA-Public Use
  Company Number: CA-MERCK-0912CAN00111

PATIENT
  Age: 67 Year
  Sex: Female
  Weight: 68 kg

DRUGS (13)
  1. FOSAMAX [Suspect]
     Indication: OSTEOPOROSIS
     Route: 048
     Dates: start: 19970609, end: 20000502
  2. FOSAMAX [Suspect]
     Route: 048
     Dates: start: 20000502, end: 20001220
  3. FOSAMAX [Suspect]
     Route: 048
     Dates: start: 20001220, end: 20061030
  4. VITAMIN D (UNSPECIFIED) [Concomitant]
     Route: 065
     Dates: start: 20061101, end: 20070101
  5. VITAMIN D (UNSPECIFIED) [Concomitant]
     Route: 065
     Dates: start: 20070101, end: 20080101
  6. VITAMIN D (UNSPECIFIED) [Concomitant]
     Route: 065
     Dates: start: 20080101
  7. SPIRIVA [Concomitant]
     Indication: ASTHMA
     Route: 065
  8. NEXIUM [Concomitant]
     Indication: GASTROOESOPHAGEAL REFLUX DISEASE
     Route: 065
  9. NEXIUM [Concomitant]
     Indication: DYSPEPSIA
     Route: 065
  10. ASPIRIN [Concomitant]
     Route: 065
  11. ALENDRONATE SODIUM AND CHOLECALCIFEROL [Suspect]
     Indication: OSTEOPOROSIS
     Route: 048
     Dates: start: 20061101, end: 20071019
  12. DIAZEPAM [Concomitant]
     Route: 065
  13. COMBIVENT [Concomitant]
     Route: 065

REACTIONS (13)
  - ASTHENIA [None]
  - ATELECTASIS [None]
  - BONE DISORDER [None]
  - CHRONIC OBSTRUCTIVE PULMONARY DISEASE [None]
  - ENDODONTIC PROCEDURE [None]
  - FEMUR FRACTURE [None]
  - INAPPROPRIATE SCHEDULE OF DRUG ADMINISTRATION [None]
  - LOW TURNOVER OSTEOPATHY [None]
  - MULTIPLE INJURIES [None]
  - MUSCULOSKELETAL PAIN [None]
  - SCAR [None]
  - STRESS FRACTURE [None]
  - TOOTH DISORDER [None]
